FAERS Safety Report 7655869-4 (Version None)
Quarter: 2011Q3

REPORT INFORMATION
  Report Type: 
  Country: None (occurrence: None)
  Receive Date: 20110729
  Receipt Date: 20110719
  Transmission Date: 20111222
  Serious: Yes (Other)
  Sender: FDA-Public Use
  Company Number: B0735141A

PATIENT
  Sex: 0

DRUGS (2)
  1. UNKNOWN( FORMULATION UNKNOWN) [Suspect]
     Indication: KAPOSI'S SARCOMA
     Dosage: UNK
  2. ZIDOVUDINE [Suspect]
     Indication: KAPOSI'S SARCOMA
     Dosage: ORAL
     Route: 048

REACTIONS (3)
  - URINARY TRACT INFECTION [None]
  - DEVICE RELATED INFECTION [None]
  - CLOSTRIDIAL INFECTION [None]
